FAERS Safety Report 13608959 (Version 1)
Quarter: 2017Q2

REPORT INFORMATION
  Report Type: Report from Study
  Country: FR (occurrence: FR)
  Receive Date: 20170602
  Receipt Date: 20170602
  Transmission Date: 20170830
  Serious: Yes (Other)
  Sender: FDA-Public Use
  Company Number: PHHY2016FR139390

PATIENT
  Age: 58 Year
  Sex: Female
  Weight: 42.6 kg

DRUGS (2)
  1. ZARZIO [Suspect]
     Active Substance: FILGRASTIM
     Dosage: UNK
     Route: 041
  2. ZARZIO [Suspect]
     Active Substance: FILGRASTIM
     Indication: PRODUCT USED FOR UNKNOWN INDICATION
     Dosage: 30 IU, QD
     Route: 041
     Dates: start: 20160429

REACTIONS (5)
  - Diarrhoea [Recovered/Resolved]
  - Blood alkaline phosphatase increased [Not Recovered/Not Resolved]
  - Cholestasis [Not Recovered/Not Resolved]
  - Diarrhoea [Recovered/Resolved]
  - Gamma-glutamyltransferase increased [Not Recovered/Not Resolved]

NARRATIVE: CASE EVENT DATE: 20160430
